FAERS Safety Report 13150666 (Version 1)
Quarter: 2017Q1

REPORT INFORMATION
  Report Type: Spontaneous
  Country: US (occurrence: US)
  Receive Date: 20170125
  Receipt Date: 20170125
  Transmission Date: 20170428
  Serious: No
  Sender: FDA-Public Use
  Company Number: US-GLAXOSMITHKLINE-US2017GSK009704

PATIENT
  Age: 65 Year
  Sex: Male
  Weight: 86.17 kg

DRUGS (12)
  1. WELLBUTRIN XL [Suspect]
     Active Substance: BUPROPION HYDROCHLORIDE
     Indication: ATTENTION DEFICIT/HYPERACTIVITY DISORDER
     Dosage: 150 MG, QD
     Route: 048
     Dates: start: 1998
  2. PREDNISONE. [Concomitant]
     Active Substance: PREDNISONE
     Indication: LUNG TRANSPLANT
     Route: 048
  3. TACROLIMUS. [Concomitant]
     Active Substance: TACROLIMUS
     Indication: LUNG TRANSPLANT
     Route: 048
  4. CELLCEPT [Concomitant]
     Active Substance: MYCOPHENOLATE MOFETIL\MYCOPHENOLATE MOFETIL HYDROCHLORIDE
     Indication: LUNG TRANSPLANT
     Dosage: 250 MG, BID
     Route: 048
     Dates: start: 2007
  5. BUPROPION HYDROCHLORIDE TABLET [Suspect]
     Active Substance: BUPROPION HYDROCHLORIDE
     Indication: DEPRESSION
  6. SULFUR. [Concomitant]
     Active Substance: SULFUR
     Indication: LUNG TRANSPLANT
     Dosage: 20 MG, QD
     Dates: start: 2007
  7. GABAPENTIN. [Concomitant]
     Active Substance: GABAPENTIN
     Indication: LUNG TRANSPLANT
     Dosage: 300 MG, BID
     Route: 048
     Dates: start: 2007
  8. ASPIRIN. [Concomitant]
     Active Substance: ASPIRIN
     Indication: LUNG TRANSPLANT
     Dosage: 1 DF, QD
     Route: 048
     Dates: start: 2007
  9. METOPROLOL. [Concomitant]
     Active Substance: METOPROLOL
     Indication: LUNG TRANSPLANT
     Dosage: 10 MG, BID
     Route: 048
     Dates: start: 2007
  10. BUPROPION HYDROCHLORIDE TABLET [Suspect]
     Active Substance: BUPROPION HYDROCHLORIDE
     Indication: ATTENTION DEFICIT/HYPERACTIVITY DISORDER
     Dosage: 150 MG, QD
     Route: 048
  11. WELLBUTRIN XL [Suspect]
     Active Substance: BUPROPION HYDROCHLORIDE
     Indication: DEPRESSION
  12. AZITHROMYCIN ANHYDROUS. [Concomitant]
     Active Substance: AZITHROMYCIN ANHYDROUS
     Indication: LUNG TRANSPLANT
     Dosage: 1 DF, BID
     Route: 048
     Dates: start: 2007

REACTIONS (2)
  - Off label use [Unknown]
  - Drug ineffective [Unknown]
